FAERS Safety Report 15678222 (Version 1)
Quarter: 2018Q4

REPORT INFORMATION
  Report Type: Spontaneous
  Country: US (occurrence: US)
  Receive Date: 20181201
  Receipt Date: 20181201
  Transmission Date: 20190205
  Serious: No
  Sender: FDA-Public Use
  Company Number: US-JNJFOC-20181113998

PATIENT
  Age: 45 Year
  Sex: Male
  Weight: 108.86 kg

DRUGS (1)
  1. TYLENOL REGULAR STRENGTH [Suspect]
     Active Substance: ACETAMINOPHEN
     Indication: PAIN IN EXTREMITY
     Dosage: 2 TABLETS PER DOSE; 6-10 TABLETS A DAY
     Route: 048

REACTIONS (1)
  - Drug ineffective [Unknown]
